FAERS Safety Report 9223465 (Version 1)
Quarter: 2013Q2

REPORT INFORMATION
  Report Type: Spontaneous
  Country: PL (occurrence: PL)
  Receive Date: 20130410
  Receipt Date: 20130410
  Transmission Date: 20140414
  Serious: Yes (Death)
  Sender: FDA-Public Use
  Company Number: PL-BAXTER-2013BAX012709

PATIENT
  Sex: 0

DRUGS (2)
  1. ENDOXAN [Suspect]
     Indication: CHRONIC MYELOID LEUKAEMIA
  2. CLOFARABINE [Suspect]
     Indication: CHRONIC MYELOID LEUKAEMIA

REACTIONS (1)
  - Death [Fatal]
